FAERS Safety Report 10112260 (Version 2)
Quarter: 2014Q2

REPORT INFORMATION
  Report Type: Report from Study
  Country: US (occurrence: US)
  Receive Date: 20140425
  Receipt Date: 20140425
  Transmission Date: 20141212
  Serious: Yes (Hospitalization, Other)
  Sender: FDA-Public Use
  Company Number: US-ABBVIE-12P-163-0986033-00

PATIENT
  Age: 67 Year
  Sex: Female
  Weight: 106.24 kg

DRUGS (16)
  1. HUMIRA [Suspect]
     Indication: RHEUMATOID ARTHRITIS
     Route: 058
     Dates: start: 201010, end: 201112
  2. HUMIRA [Suspect]
     Indication: PSORIATIC ARTHROPATHY
     Route: 058
     Dates: start: 201205, end: 201206
  3. HUMIRA [Suspect]
     Route: 058
     Dates: start: 201207
  4. LIPITOR [Concomitant]
     Indication: BLOOD CHOLESTEROL INCREASED
  5. HYZAAR [Concomitant]
     Indication: HYPERTENSION
  6. PROZAC [Concomitant]
     Indication: DEPRESSION
  7. LYRICA [Concomitant]
     Indication: FIBROMYALGIA
  8. SYNTHROID [Concomitant]
     Indication: HYPOTHYROIDISM
  9. OMEPRAZOLE [Concomitant]
     Indication: GASTROOESOPHAGEAL REFLUX DISEASE
  10. NORVASC [Concomitant]
     Indication: HYPERTENSION
  11. EVISTA [Concomitant]
     Indication: OSTEOPOROSIS
  12. ALLEGRA [Concomitant]
     Indication: HYPERSENSITIVITY
  13. MULTIVITAMIN [Concomitant]
     Indication: VITAMIN SUPPLEMENTATION
  14. VITAMIN B12 [Concomitant]
     Indication: VITAMIN SUPPLEMENTATION
  15. VITAMIN B6 [Concomitant]
     Indication: VITAMIN SUPPLEMENTATION
  16. CALCIUM [Concomitant]
     Indication: MINERAL SUPPLEMENTATION

REACTIONS (6)
  - Wound dehiscence [Recovered/Resolved]
  - Rheumatoid arthritis [Recovered/Resolved]
  - Impaired healing [Recovered/Resolved]
  - Swelling [Unknown]
  - Arthralgia [Unknown]
  - Gait disturbance [Unknown]
